FAERS Safety Report 6289913-6 (Version None)
Quarter: 2009Q3

REPORT INFORMATION
  Report Type: 
  Country: None (occurrence: None)
  Receive Date: 20090730
  Receipt Date: 20080915
  Transmission Date: 20100115
  Serious: No
  Sender: FDA-Public Use
  Company Number: US-BRISTOL-MYERS SQUIBB COMPANY-14335665

PATIENT
  Age: 70 Year
  Sex: Female
  Weight: 47 kg

DRUGS (6)
  1. COUMADIN [Suspect]
     Indication: COLITIS ISCHAEMIC
     Dosage: 1 DOSAGE FORM= (2MG) 2TABS ON MON,WED,FRI AND (2MG) 1.5 TABS ON TUE,THU,SAT,SUN
     Dates: start: 20080901
  2. VITAMIN D [Suspect]
  3. CALCIUM [Suspect]
  4. LISINOPRIL [Concomitant]
  5. PRAVASTATIN SODIUM [Concomitant]
  6. MULTI-VITAMIN [Concomitant]

REACTIONS (3)
  - ALOPECIA [None]
  - CONSTIPATION [None]
  - INTERNATIONAL NORMALISED RATIO INCREASED [None]
